FAERS Safety Report 23697892 (Version 1)
Quarter: 2024Q2

REPORT INFORMATION
  Report Type: Spontaneous
  Country: US (occurrence: US)
  Receive Date: 20240402
  Receipt Date: 20240402
  Transmission Date: 20240716
  Serious: Yes (Other)
  Sender: FDA-Public Use
  Company Number: US-PFIZER INC-202400075607

PATIENT
  Age: 68 Year
  Sex: Female
  Weight: 78.47 kg

DRUGS (1)
  1. LITFULO [Suspect]
     Active Substance: RITLECITINIB TOSYLATE
     Indication: Alopecia
     Dosage: 50 MG, 1X/DAY
     Route: 048
     Dates: start: 202401, end: 20240322

REACTIONS (3)
  - Occipital lobe stroke [Unknown]
  - Transient ischaemic attack [Unknown]
  - Dehydration [Unknown]

NARRATIVE: CASE EVENT DATE: 20240301
